FAERS Safety Report 4429774-0 (Version None)
Quarter: 2004Q3

REPORT INFORMATION
  Report Type: 
  Country: None (occurrence: None)
  Receive Date: 20040817
  Receipt Date: 20040817
  Transmission Date: 20050211
  Serious: Yes (Hospitalization)
  Sender: FDA-Public Use
  Company Number: None

PATIENT
  Age: 69 Year
  Sex: Male
  Weight: 103.7 kg

DRUGS (11)
  1. ZOMETA [Suspect]
     Indication: PROSTATE CANCER
     Dosage: 4 MG D2 IV
     Route: 042
     Dates: start: 20040319, end: 20040721
  2. DOCETAXEL [Suspect]
     Indication: PROSTATE CANCER
     Dosage: 70MG/M2 D 2 IV
     Route: 042
     Dates: start: 20040319, end: 20040721
  3. ESTRAMUSTINE [Suspect]
     Indication: PROSTATE CANCER
     Dosage: 280 MG TID D1-3
  4. PRINIVIL [Concomitant]
  5. MULTIVITAMIN [Concomitant]
  6. ADVIL [Concomitant]
  7. ALLEGRA [Concomitant]
  8. LUPRON [Concomitant]
  9. OMEPRAZOLE [Concomitant]
  10. COMPAZINE [Concomitant]
  11. DECADRON [Concomitant]

REACTIONS (17)
  - ASTHENIA [None]
  - BLOOD CALCIUM DECREASED [None]
  - BLOOD SODIUM DECREASED [None]
  - BRAIN NATRIURETIC PEPTIDE INCREASED [None]
  - CHEST X-RAY ABNORMAL [None]
  - CREATINE PHOSPHOKINASE DECREASED [None]
  - DEEP VEIN THROMBOSIS [None]
  - DYSPNOEA [None]
  - DYSPNOEA EXERTIONAL [None]
  - FATIGUE [None]
  - INTERNATIONAL NORMALISED RATIO DECREASED [None]
  - MALAISE [None]
  - OEDEMA PERIPHERAL [None]
  - PLATELET COUNT DECREASED [None]
  - PROTHROMBIN TIME PROLONGED [None]
  - PULMONARY EMBOLISM [None]
  - WHITE BLOOD CELL COUNT DECREASED [None]
